FAERS Safety Report 6288796-8 (Version None)
Quarter: 2009Q3

REPORT INFORMATION
  Report Type: 
  Country: None (occurrence: None)
  Receive Date: 20090729
  Receipt Date: 20090720
  Transmission Date: 20100115
  Serious: Yes (Hospitalization)
  Sender: FDA-Public Use
  Company Number: FR-PFIZER INC-2009180244

PATIENT
  Age: 26 Year

DRUGS (4)
  1. CYTOTEC [Suspect]
     Indication: ABORTION INDUCED
     Route: 067
     Dates: start: 20090112, end: 20090112
  2. AUGMENTIN [Suspect]
     Indication: HYPERTHERMIA
     Route: 042
     Dates: start: 20090112, end: 20090112
  3. PARACETAMOL [Suspect]
     Indication: HYPERTHERMIA
     Route: 042
     Dates: start: 20090112, end: 20090112
  4. MIFEGYNE [Concomitant]

REACTIONS (7)
  - ERYTHEMA [None]
  - FACE OEDEMA [None]
  - HYPERSENSITIVITY [None]
  - OFF LABEL USE [None]
  - PREMATURE LABOUR [None]
  - PRURITUS [None]
  - VOMITING [None]
